FAERS Safety Report 12725660 (Version 1)
Quarter: 2016Q3

REPORT INFORMATION
  Report Type: Spontaneous
  Country: None (occurrence: US)
  Receive Date: 20160908
  Receipt Date: 20160908
  Transmission Date: 20161109
  Serious: No
  Sender: FDA-Public Use
  Company Number: US-RARE DISEASE THERAPEUTICS, INC.-1057176

PATIENT
  Age: 25 Year
  Sex: Female
  Weight: 95.25 kg

DRUGS (6)
  1. CYSTADANE [Suspect]
     Active Substance: BETAINE
     Dates: start: 20140729
  2. FOLIC ACID. [Concomitant]
     Active Substance: FOLIC ACID
  3. B100 [Concomitant]
     Active Substance: MINERALS\VITAMINS
  4. CYSTADANE [Suspect]
     Active Substance: BETAINE
     Indication: METHYLENETETRAHYDROFOLATE REDUCTASE DEFICIENCY
     Dates: start: 200305
  5. ASPIRIN. [Concomitant]
     Active Substance: ASPIRIN
  6. VITAMIN B12 [Concomitant]
     Active Substance: CYANOCOBALAMIN

REACTIONS (3)
  - Gastric disorder [Recovered/Resolved]
  - Overdose [None]
  - Treatment noncompliance [None]
